FAERS Safety Report 8604164-5 (Version None)
Quarter: 2012Q3

REPORT INFORMATION
  Report Type: 
  Country: None (occurrence: None)
  Receive Date: 20120820
  Receipt Date: 20120815
  Transmission Date: 20120928
  Serious: Yes (Life-Threatening, Hospitalization, Other)
  Sender: FDA-Public Use
  Company Number: BE-GENZYME-CLOF-1002120

PATIENT
  Sex: Male
  Weight: 76 kg

DRUGS (3)
  1. IDARUBICIN HCL [Suspect]
     Indication: ACUTE LEUKAEMIA
     Dosage: 23.5 MG, UNK
     Route: 042
     Dates: start: 20120328, end: 20120330
  2. CLOFARABINE [Suspect]
     Indication: ACUTE LEUKAEMIA
     Dosage: 19.6 MG, UNK
     Route: 042
     Dates: start: 20120328, end: 20120401
  3. CYTARABINE [Suspect]
     Indication: ACUTE LEUKAEMIA
     Dosage: 391 MG, UNK
     Route: 042
     Dates: start: 20120328, end: 20120403

REACTIONS (14)
  - FEBRILE NEUTROPENIA [None]
  - CEREBRAL ARTERY EMBOLISM [None]
  - SPLENIC EMBOLISM [None]
  - MUCOSAL INFLAMMATION [None]
  - PERICARDITIS [None]
  - VENTRICULAR TACHYCARDIA [None]
  - HEPATIC FUNCTION ABNORMAL [None]
  - ENCEPHALOPATHY [None]
  - RESPIRATORY FAILURE [None]
  - PNEUMONIA CYTOMEGALOVIRAL [None]
  - ACUTE RESPIRATORY DISTRESS SYNDROME [None]
  - CANDIDIASIS [None]
  - ENTEROCOCCAL SEPSIS [None]
  - RENAL FAILURE ACUTE [None]
